FAERS Safety Report 20405471 (Version 1)
Quarter: 2022Q1

REPORT INFORMATION
  Report Type: Spontaneous
  Country: US (occurrence: None)
  Receive Date: 20220129
  Receipt Date: 20220129
  Transmission Date: 20220423
  Serious: No
  Sender: FDA-Public Use
  Company Number: None

PATIENT
  Age: 58 Year
  Sex: Female
  Weight: 64.35 kg

DRUGS (1)
  1. EMGALITY [Suspect]
     Active Substance: GALCANEZUMAB-GNLM
     Indication: Migraine
     Dosage: OTHER FREQUENCY : MONTHLY;?
     Route: 030
     Dates: start: 20211109, end: 20220109

REACTIONS (5)
  - Weight increased [None]
  - Abdominal pain upper [None]
  - Constipation [None]
  - Muscle spasms [None]
  - Raynaud^s phenomenon [None]
